FAERS Safety Report 11995234 (Version 3)
Quarter: 2016Q2

REPORT INFORMATION
  Report Type: Spontaneous
  Country: US (occurrence: US)
  Receive Date: 20160203
  Receipt Date: 20160526
  Transmission Date: 20160815
  Serious: Yes (Life-Threatening, Hospitalization, Other)
  Sender: FDA-Public Use
  Company Number: US-009507513-1602USA001366

PATIENT
  Sex: Male
  Weight: 86.17 kg

DRUGS (3)
  1. JANUMET [Suspect]
     Active Substance: METFORMIN HYDROCHLORIDE\SITAGLIPTIN PHOSPHATE
     Dosage: UNK
     Route: 048
  2. BYETTA [Suspect]
     Active Substance: EXENATIDE
     Indication: TYPE 2 DIABETES MELLITUS
     Dosage: 5 MICROGRAM, BID
     Dates: start: 20080317, end: 20141021
  3. JANUVIA [Suspect]
     Active Substance: SITAGLIPTIN PHOSPHATE
     Indication: TYPE 2 DIABETES MELLITUS
     Dosage: 100 MG, QD
     Route: 048
     Dates: start: 20080429, end: 20141021

REACTIONS (20)
  - Pancreatitis chronic [Not Recovered/Not Resolved]
  - Bile duct stent insertion [Unknown]
  - Hepatitis A [Unknown]
  - Polyp [Unknown]
  - Sleep apnoea syndrome [Unknown]
  - Adenocarcinoma pancreas [Unknown]
  - Myocardial infarction [Unknown]
  - Hyponatraemia [Unknown]
  - Open fracture [Unknown]
  - Cataract [Unknown]
  - Nephrolithiasis [Unknown]
  - Bradycardia [Unknown]
  - Hyperlipidaemia [Unknown]
  - Chronic obstructive pulmonary disease [Unknown]
  - Palpitations [Unknown]
  - Hypertension [Unknown]
  - Inappropriate schedule of drug administration [Unknown]
  - Aspergilloma [Unknown]
  - Cholecystitis chronic [Not Recovered/Not Resolved]
  - Coronary artery disease [Unknown]

NARRATIVE: CASE EVENT DATE: 20150722
